FAERS Safety Report 5792577-9 (Version None)
Quarter: 2008Q2

REPORT INFORMATION
  Report Type: 
  Country: None (occurrence: None)
  Receive Date: 20080626
  Receipt Date: 20080620
  Transmission Date: 20081010
  Serious: Yes (Other)
  Sender: FDA-Public Use
  Company Number: US-AMGEN-US283731

PATIENT
  Sex: Male
  Weight: 102.6 kg

DRUGS (4)
  1. VECTIBIX [Suspect]
     Indication: COLORECTAL CANCER
     Route: 042
     Dates: start: 20080421, end: 20080505
  2. POTASSIUM CHLORIDE [Concomitant]
  3. COMPAZINE [Concomitant]
  4. IMODIUM [Concomitant]

REACTIONS (5)
  - ERYTHEMA [None]
  - PAIN OF SKIN [None]
  - RASH ERYTHEMATOUS [None]
  - RASH MACULO-PAPULAR [None]
  - SKIN TOXICITY [None]
